FAERS Safety Report 25113936 (Version 2)
Quarter: 2025Q3

REPORT INFORMATION
  Report Type: Report from Study
  Country: CN (occurrence: CN)
  Receive Date: 20250324
  Receipt Date: 20250806
  Transmission Date: 20251020
  Serious: Yes (Hospitalization)
  Sender: MERCK SHARP & DOHME LLC
  Company Number: CN-AstraZeneca-2023A267875

PATIENT
  Age: 66 Year
  Sex: Female
  Weight: 53 kg

DRUGS (32)
  1. PEMBROLIZUMAB [Suspect]
     Active Substance: PEMBROLIZUMAB
     Indication: Non-small cell lung cancer
     Route: 042
     Dates: start: 20231103, end: 20231129
  2. APREPITANT [Concomitant]
     Active Substance: APREPITANT
     Indication: Prophylaxis
     Dosage: 125 MG, QD
     Route: 048
     Dates: start: 20231129, end: 20231129
  3. APREPITANT [Concomitant]
     Active Substance: APREPITANT
     Indication: Prophylaxis
     Dosage: 80 MG, QD
     Route: 048
     Dates: start: 20231104, end: 20231105
  4. APREPITANT [Concomitant]
     Active Substance: APREPITANT
     Indication: Prophylaxis
     Dosage: 80 MG, QD
     Route: 048
     Dates: start: 20231130, end: 20231201
  5. APREPITANT [Concomitant]
     Active Substance: APREPITANT
     Indication: Prophylaxis
     Dosage: 125 MG, QD
     Route: 048
     Dates: start: 20231103, end: 20231103
  6. METHYLCOBALAMIN [Concomitant]
     Active Substance: METHYLCOBALAMIN
     Indication: Vitamin supplementation
     Dosage: 1 MG, QD
     Route: 030
     Dates: start: 20231103, end: 20231103
  7. PEMETREXED DIARGININE [Suspect]
     Active Substance: PEMETREXED DIARGININE
     Indication: Non-small cell lung cancer
     Route: 042
     Dates: start: 20231103, end: 20231129
  8. TROPISETRON HYDROCHLORIDE [Concomitant]
     Active Substance: TROPISETRON HYDROCHLORIDE
     Indication: Vomiting
     Dosage: 5 MG, QD
     Route: 042
     Dates: start: 20231103, end: 20231104
  9. TROPISETRON HYDROCHLORIDE [Concomitant]
     Active Substance: TROPISETRON HYDROCHLORIDE
     Indication: Vomiting
     Dosage: 5 MG, QD
     Route: 042
     Dates: start: 20231129, end: 20231130
  10. COMPOUND GLYCYRRHIZIN [CYSTEINE HYDROCHLORIDE;GLYCINE;GLYCYRRHIZIC ... [Concomitant]
     Indication: Product used for unknown indication
     Dosage: 100 ML, QD
     Route: 048
     Dates: start: 20231103, end: 20231104
  11. COMPOUND GLYCYRRHIZIN [CYSTEINE HYDROCHLORIDE;GLYCINE;GLYCYRRHIZIC ... [Concomitant]
     Indication: Product used for unknown indication
     Dosage: 100 ML, QD
     Route: 048
     Dates: start: 20231129, end: 20231129
  12. MAI LING DA [Concomitant]
     Indication: Adverse event
     Route: 048
     Dates: start: 20231123
  13. LEUCOGEN [ASPARAGINASE] [Concomitant]
     Indication: Prophylaxis
     Dosage: 20 MG, ONCE EVERY 8HR
     Route: 048
     Dates: start: 20231104
  14. UNSPECIFIED INGREDIENT [Concomitant]
     Active Substance: UNSPECIFIED INGREDIENT
     Indication: Product used for unknown indication
     Route: 065
     Dates: start: 20231102
  15. FUROSEMIDE SODIUM [Concomitant]
     Active Substance: FUROSEMIDE SODIUM
     Indication: Prophylaxis
     Dosage: 40 MG, QD
     Route: 042
     Dates: start: 20231103, end: 20231104
  16. FUROSEMIDE SODIUM [Concomitant]
     Active Substance: FUROSEMIDE SODIUM
     Indication: Prophylaxis
     Dosage: 40 MG, QD
     Route: 042
     Dates: start: 20231129, end: 20231129
  17. METOCLOPRAMIDE HYDROCHLORIDE [Concomitant]
     Active Substance: METOCLOPRAMIDE HYDROCHLORIDE
     Indication: Nausea
     Dosage: 10 MG, QD
     Route: 042
     Dates: start: 20231103, end: 20231104
  18. METOCLOPRAMIDE HYDROCHLORIDE [Concomitant]
     Active Substance: METOCLOPRAMIDE HYDROCHLORIDE
     Indication: Nausea
     Dosage: 10 MG, QD
     Route: 042
     Dates: start: 20231129, end: 20231130
  19. INVERT SUGAR [Concomitant]
     Active Substance: INVERT SUGAR
     Indication: Product used for unknown indication
     Dosage: 250 ML, QD
     Route: 042
     Dates: start: 20231129, end: 20231129
  20. INVERT SUGAR [Concomitant]
     Active Substance: INVERT SUGAR
     Indication: Product used for unknown indication
     Dosage: 250 ML, QD
     Route: 042
     Dates: start: 20231103, end: 20231104
  21. OMEPRAZOLE SODIUM [Concomitant]
     Active Substance: OMEPRAZOLE SODIUM
     Indication: Gastric mucosal lesion
     Dosage: 40 MG, QD
     Route: 042
     Dates: start: 20231129, end: 20231130
  22. OMEPRAZOLE SODIUM [Concomitant]
     Active Substance: OMEPRAZOLE SODIUM
     Indication: Gastric mucosal lesion
     Dosage: 40 MG, QD
     Route: 042
     Dates: start: 20231220, end: 20231227
  23. OMEPRAZOLE SODIUM [Concomitant]
     Active Substance: OMEPRAZOLE SODIUM
     Indication: Gastric mucosal lesion
     Dosage: 40 MG, QD
     Route: 042
     Dates: start: 20231103, end: 20231103
  24. DEXAMETHASONE SODIUM PHOSPHATE [Concomitant]
     Active Substance: DEXAMETHASONE SODIUM PHOSPHATE
     Indication: Prophylaxis
     Dosage: 3.75 MG, ONCE EVERY 12HR
     Route: 048
     Dates: start: 20231102, end: 20231103
  25. DEXAMETHASONE SODIUM PHOSPHATE [Concomitant]
     Active Substance: DEXAMETHASONE SODIUM PHOSPHATE
     Indication: Prophylaxis
     Dosage: 3.75 MG, ONCE EVERY 12HR
     Route: 048
     Dates: start: 20231128, end: 20231130
  26. VITAMIN B6 [Concomitant]
     Active Substance: PYRIDOXINE HYDROCHLORIDE
     Indication: Vitamin supplementation
     Dosage: 100 MG, QD
     Route: 042
     Dates: start: 20231103, end: 20231103
  27. CARBOPLATIN [Suspect]
     Active Substance: CARBOPLATIN
     Indication: Non-small cell lung cancer
     Route: 042
     Dates: start: 20231103, end: 20231129
  28. CISPLATIN [Suspect]
     Active Substance: CISPLATIN
     Indication: Non-small cell lung cancer
  29. FERROUS SUCCINATE [Concomitant]
     Active Substance: FERROUS SUCCINATE
     Indication: Venous thrombosis
     Dosage: 0.10 G, TID
     Route: 048
     Dates: start: 20231123
  30. DIOSMIN [Concomitant]
     Active Substance: DIOSMIN
     Indication: Venous thrombosis
     Dosage: 0.90 G, BID
     Route: 048
     Dates: start: 20231123
  31. FOLIC ACID [Concomitant]
     Active Substance: FOLIC ACID
     Indication: Venous thrombosis
     Dosage: 5 MG, TID
     Route: 048
     Dates: start: 20231123
  32. EDOXABAN TOSYLATE [Concomitant]
     Active Substance: EDOXABAN TOSYLATE
     Indication: Adverse event
     Route: 048
     Dates: start: 20231123

REACTIONS (1)
  - Pelvic venous thrombosis [Recovering/Resolving]

NARRATIVE: CASE EVENT DATE: 20231123
